FAERS Safety Report 11941673 (Version 1)
Quarter: 2016Q1

REPORT INFORMATION
  Report Type: Spontaneous
  Country: US (occurrence: US)
  Receive Date: 20160123
  Receipt Date: 20160123
  Transmission Date: 20160526
  Serious: Yes (Death)
  Sender: FDA-Public Use
  Company Number: US-APOTEX-2016AP005526

PATIENT
  Age: 63 Year
  Sex: Female

DRUGS (3)
  1. ZOLPIDEM TARTRATE EXTENDED-RELEASE TABLETS [Suspect]
     Active Substance: ZOLPIDEM TARTRATE
     Indication: PRODUCT USED FOR UNKNOWN INDICATION
     Route: 048
  2. FLECAINIDE ACETATE. [Suspect]
     Active Substance: FLECAINIDE ACETATE
     Indication: PRODUCT USED FOR UNKNOWN INDICATION
     Route: 048
  3. OLMESARTAN [Suspect]
     Active Substance: OLMESARTAN
     Indication: PRODUCT USED FOR UNKNOWN INDICATION
     Route: 048

REACTIONS (1)
  - Completed suicide [Fatal]
